FAERS Safety Report 23624970 (Version 2)
Quarter: 2024Q1

REPORT INFORMATION
  Report Type: Other
  Country: GB (occurrence: None)
  Receive Date: 20240313
  Receipt Date: 20240320
  Transmission Date: 20240410
  Serious: Yes (Hospitalization, Other)
  Sender: FDA-Public Use
  Company Number: GB-ROCHE-3517209

PATIENT
  Age: 65 Year
  Sex: Male
  Weight: 88.3 kg

DRUGS (16)
  1. BEVACIZUMAB [Suspect]
     Active Substance: BEVACIZUMAB
     Indication: Hepatocellular carcinoma
     Route: 042
     Dates: start: 20230111
  2. ATEZOLIZUMAB [Suspect]
     Active Substance: ATEZOLIZUMAB
     Indication: Hepatocellular carcinoma
     Dosage: ON 22/NOV/2023, RECEIVED MOST RECENT DOSE PRIOR AE/SAE IS 1200MG.
     Route: 041
     Dates: start: 20230111
  3. BUDESONIDE\FORMOTEROL [Concomitant]
     Active Substance: BUDESONIDE\FORMOTEROL
     Dates: start: 1993
  4. ALBUTEROL [Concomitant]
     Active Substance: ALBUTEROL
     Dates: start: 1979, end: 20240307
  5. OMEPRAZOLE [Concomitant]
     Active Substance: OMEPRAZOLE
     Dates: start: 202204
  6. NITROFURANTOIN [Concomitant]
     Active Substance: NITROFURANTOIN
     Dates: start: 20230808
  7. CANDESARTAN [Concomitant]
     Active Substance: CANDESARTAN
     Dates: start: 20230705, end: 20240307
  8. CLOTRIMAZOLE 7 [Concomitant]
     Active Substance: CLOTRIMAZOLE
     Dates: start: 20230820, end: 20240307
  9. RENAPRO [Concomitant]
     Dates: start: 202211, end: 20240307
  10. DALTEPARIN [Concomitant]
     Active Substance: DALTEPARIN
     Dates: start: 20231219, end: 20240307
  11. MOMETASONE [Concomitant]
     Active Substance: MOMETASONE
     Dates: start: 20231220
  12. PREDNISOLONE [Concomitant]
     Active Substance: PREDNISOLONE
     Dates: start: 20240124, end: 20240206
  13. PREDNISOLONE [Concomitant]
     Active Substance: PREDNISOLONE
     Dates: start: 20240207, end: 20240307
  14. CLARITHROMYCIN [Concomitant]
     Active Substance: CLARITHROMYCIN
     Dates: start: 20240227, end: 20240304
  15. AMOXICILLIN\CLAVULANATE POTASSIUM [Concomitant]
     Active Substance: AMOXICILLIN\CLAVULANATE POTASSIUM
     Dates: start: 20240228, end: 20240306
  16. FUROSEMIDE [Concomitant]
     Active Substance: FUROSEMIDE
     Dates: start: 20230624, end: 20240307

REACTIONS (3)
  - Dyspnoea [Recovered/Resolved]
  - Pneumonia [Not Recovered/Not Resolved]
  - Blood bilirubin increased [Unknown]

NARRATIVE: CASE EVENT DATE: 20240226
